FAERS Safety Report 7293712-6 (Version None)
Quarter: 2011Q1

REPORT INFORMATION
  Report Type: 
  Country: None (occurrence: None)
  Receive Date: 20110215
  Receipt Date: 20110208
  Transmission Date: 20110831
  Serious: Yes (Other)
  Sender: FDA-Public Use
  Company Number: B0699945A

PATIENT
  Sex: Female

DRUGS (4)
  1. AVANDIA [Suspect]
     Route: 065
  2. GLUCOPHAGE [Concomitant]
     Dates: start: 20090101
  3. APROVEL [Concomitant]
  4. CO-APROVEL [Concomitant]

REACTIONS (2)
  - BREAST NEOPLASM [None]
  - BREAST MASS [None]
